FAERS Safety Report 7307346-8 (Version None)
Quarter: 2011Q1

REPORT INFORMATION
  Report Type: 
  Country: None (occurrence: None)
  Receive Date: 20110223
  Receipt Date: 20110215
  Transmission Date: 20110831
  Serious: Yes (Other)
  Sender: FDA-Public Use
  Company Number: US-PFIZER INC-2011033440

PATIENT
  Sex: Female
  Weight: 51.701 kg

DRUGS (7)
  1. CREON [Suspect]
     Indication: PANCREATIC INSUFFICIENCY
  2. VERAPAMIL [Concomitant]
     Dosage: UNK
  3. COUMADIN [Concomitant]
     Dosage: UNK
  4. VITAMIN D [Concomitant]
     Dosage: UNK
  5. CREON [Suspect]
     Indication: PANCREATITIS CHRONIC
     Dosage: UNK
  6. ERGOCALCIFEROL [Concomitant]
     Dosage: UNK
  7. NEURONTIN [Suspect]
     Indication: NEUROPATHY PERIPHERAL
     Dosage: UNK
     Dates: start: 19990801, end: 19991001

REACTIONS (8)
  - DIARRHOEA [None]
  - ATRIAL FIBRILLATION [None]
  - RECTAL DISCHARGE [None]
  - PRODUCT FORMULATION ISSUE [None]
  - FLATULENCE [None]
  - HAEMORRHOIDAL HAEMORRHAGE [None]
  - ABDOMINAL PAIN [None]
  - DEFAECATION URGENCY [None]
